FAERS Safety Report 19752500 (Version 1)
Quarter: 2021Q3

REPORT INFORMATION
  Report Type: Other
  Country: DE (occurrence: DE)
  Receive Date: 20210827
  Receipt Date: 20210827
  Transmission Date: 20211014
  Serious: Yes (Disabling, Other)
  Sender: FDA-Public Use
  Company Number: DE-SAPTALIS PHARMACEUTICALS,LLC-000109

PATIENT
  Age: 54 Year
  Sex: Female

DRUGS (1)
  1. TRIAMCINOLONE [Suspect]
     Active Substance: TRIAMCINOLONE
     Indication: MACULOPATHY
     Route: 031
     Dates: start: 201706

REACTIONS (4)
  - Blindness [Recovering/Resolving]
  - Macular oedema [Recovered/Resolved]
  - Maculopathy [Recovering/Resolving]
  - Drug resistance [Unknown]
